FAERS Safety Report 5309313-2 (Version None)
Quarter: 2007Q2

REPORT INFORMATION
  Report Type: 
  Country: None (occurrence: None)
  Receive Date: 20070425
  Receipt Date: 20070425
  Transmission Date: 20071010
  Serious: Yes (Other)
  Sender: FDA-Public Use
  Company Number: None

PATIENT
  Age: 88 Year
  Sex: Male
  Weight: 68.0396 kg

DRUGS (1)
  1. FLOMAX [Suspect]
     Indication: BENIGN PROSTATIC HYPERPLASIA
     Dosage: 1 CAPSULE/D NIGHTLY PER OS
     Dates: start: 20060801, end: 20070101

REACTIONS (3)
  - AORTIC VALVE DISEASE [None]
  - CARDIAC MURMUR [None]
  - MITRAL VALVE DISEASE [None]
